FAERS Safety Report 19470732 (Version 1)
Quarter: 2021Q2

REPORT INFORMATION
  Report Type: Spontaneous
  Country: US (occurrence: US)
  Receive Date: 20210629
  Receipt Date: 20210629
  Transmission Date: 20210717
  Serious: Yes (Other)
  Sender: FDA-Public Use
  Company Number: US-SUN PHARMACEUTICAL INDUSTRIES LTD-2021R1-301449

PATIENT
  Age: 81 Year
  Sex: Female

DRUGS (1)
  1. CARBIDOPA AND LEVODOPA [Suspect]
     Active Substance: CARBIDOPA\LEVODOPA
     Indication: MUSCLE TWITCHING
     Dosage: UNK
     Route: 065

REACTIONS (3)
  - Tremor [Unknown]
  - Musculoskeletal stiffness [Unknown]
  - Condition aggravated [Unknown]
